FAERS Safety Report 5763933-X (Version None)
Quarter: 2008Q2

REPORT INFORMATION
  Report Type: 
  Country: None (occurrence: None)
  Receive Date: 20080606
  Receipt Date: 20080606
  Transmission Date: 20081010
  Serious: Yes (Life-Threatening)
  Sender: FDA-Public Use
  Company Number: None

PATIENT
  Sex: Female
  Weight: 64.4108 kg

DRUGS (1)
  1. AVELOX [Suspect]
     Indication: SINUSITIS
     Dates: start: 20080310, end: 20080320

REACTIONS (4)
  - HEPATIC ENZYME INCREASED [None]
  - HEPATOTOXICITY [None]
  - JAUNDICE [None]
  - PYREXIA [None]
